FAERS Safety Report 11302974 (Version 1)
Quarter: 2015Q3

REPORT INFORMATION
  Report Type: Spontaneous
  Country: US (occurrence: US)
  Receive Date: 20150723
  Receipt Date: 20150723
  Transmission Date: 20151125
  Serious: No
  Sender: FDA-Public Use
  Company Number: US-TEVA-499210USA

PATIENT
  Sex: Male

DRUGS (1)
  1. METOCLOPRAMIDE. [Suspect]
     Active Substance: METOCLOPRAMIDE

REACTIONS (1)
  - Swollen tongue [Unknown]
